FAERS Safety Report 9788994 (Version 2)
Quarter: 2014Q1

REPORT INFORMATION
  Report Type: Report from Study
  Country: US (occurrence: US)
  Receive Date: 20131230
  Receipt Date: 20140114
  Transmission Date: 20141002
  Serious: Yes (Hospitalization)
  Sender: FDA-Public Use
  Company Number: US-ACTELION-A-US2013-92876

PATIENT
  Age: 48 Year
  Sex: Male

DRUGS (2)
  1. VELETRI [Suspect]
     Indication: PULMONARY ARTERIAL HYPERTENSION
     Dosage: 81 NG/KG, PER MIN
     Route: 042
     Dates: start: 20100823
  2. COUMADIN [Concomitant]

REACTIONS (3)
  - Device leakage [Recovered/Resolved]
  - Viral infection [Recovered/Resolved]
  - Malaise [Recovered/Resolved]
